FAERS Safety Report 12229303 (Version 3)
Quarter: 2019Q2

REPORT INFORMATION
  Report Type: Spontaneous
  Country: US (occurrence: US)
  Receive Date: 20160401
  Receipt Date: 20190412
  Transmission Date: 20190711
  Serious: Yes (Other)
  Sender: FDA-Public Use
  Company Number: US-JNJFOC-20160302544

PATIENT
  Sex: Female

DRUGS (1)
  1. XARELTO [Suspect]
     Active Substance: RIVAROXABAN
     Indication: ANTICOAGULANT THERAPY
     Dosage: VARIABLE DOSES OF 15-20 MG
     Route: 048
     Dates: start: 20140130, end: 20150403

REACTIONS (3)
  - Myocardial infarction [Unknown]
  - Haemorrhage [Unknown]
  - Thrombosis [Unknown]
